FAERS Safety Report 12632537 (Version 2)
Quarter: 2016Q3

REPORT INFORMATION
  Report Type: Spontaneous
  Country: US (occurrence: US)
  Receive Date: 20160808
  Receipt Date: 20160808
  Transmission Date: 20161109
  Serious: No
  Sender: FDA-Public Use
  Company Number: US-BEH-2015055426

PATIENT
  Sex: Female
  Weight: 58 kg

DRUGS (23)
  1. ESTRADIOL. [Concomitant]
     Active Substance: ESTRADIOL
  2. HIZENTRA [Suspect]
     Active Substance: HUMAN IMMUNOGLOBULIN G
     Indication: HYPOGAMMAGLOBULINAEMIA
     Route: 058
     Dates: start: 20150923, end: 20150923
  3. METOPROLOL. [Concomitant]
     Active Substance: METOPROLOL
  4. BACTRIM [Concomitant]
     Active Substance: SULFAMETHOXAZOLE\TRIMETHOPRIM
  5. TACROLIMUS. [Concomitant]
     Active Substance: TACROLIMUS
  6. LIDOCAINE. [Concomitant]
     Active Substance: LIDOCAINE
  7. VALGANCICLOVIR. [Concomitant]
     Active Substance: VALGANCICLOVIR
  8. CALCIUM [Concomitant]
     Active Substance: CALCIUM
  9. ACETAMINOPHEN. [Concomitant]
     Active Substance: ACETAMINOPHEN
  10. DIPHENHYDRAMINE. [Concomitant]
     Active Substance: DIPHENHYDRAMINE
  11. RESTASIS [Concomitant]
     Active Substance: CYCLOSPORINE
  12. AZITHROMYCIN ANHYDROUS. [Concomitant]
     Active Substance: AZITHROMYCIN ANHYDROUS
  13. TRAZODONE [Concomitant]
     Active Substance: TRAZODONE HYDROCHLORIDE
  14. OMEPRAZOLE. [Concomitant]
     Active Substance: OMEPRAZOLE
  15. FOSAMAX [Concomitant]
     Active Substance: ALENDRONATE SODIUM
  16. ALPRAZOLAM. [Concomitant]
     Active Substance: ALPRAZOLAM
  17. METOCLOPRAMIDE. [Concomitant]
     Active Substance: METOCLOPRAMIDE
  18. HIZENTRA [Suspect]
     Active Substance: HUMAN IMMUNOGLOBULIN G
     Dates: start: 20151015
  19. MEDROXYPROGESTERONE [Concomitant]
     Active Substance: MEDROXYPROGESTERONE
  20. EPIPEN [Concomitant]
     Active Substance: EPINEPHRINE
  21. MYCOPHENOLATE [Concomitant]
     Active Substance: MYCOPHENOLIC ACID
  22. PREDNISONE. [Concomitant]
     Active Substance: PREDNISONE
  23. ASPIRIN. [Concomitant]
     Active Substance: ASPIRIN

REACTIONS (2)
  - Injection site swelling [Recovered/Resolved]
  - Injection site erythema [Recovered/Resolved]
